FAERS Safety Report 10206664 (Version 1)
Quarter: 2014Q2

REPORT INFORMATION
  Report Type: Spontaneous
  Country: US (occurrence: None)
  Receive Date: 20140528
  Receipt Date: 20140528
  Transmission Date: 20141212
  Serious: Yes (Other)
  Sender: FDA-Public Use
  Company Number: None

PATIENT
  Age: 43 Year
  Sex: Male
  Weight: 79.38 kg

DRUGS (2)
  1. ZYRTEC 10 MG MCNEIL CONSUMER HEALTHCARE [Suspect]
     Indication: SINUS DISORDER
     Dosage: 1 PILL, ONCE DAILY, TAKEN BY MOUTH
     Route: 048
     Dates: start: 20140415, end: 20140522
  2. ZYRTEC 10 MG MCNEIL CONSUMER HEALTHCARE [Suspect]
     Indication: MULTIPLE ALLERGIES
     Dosage: 1 PILL, ONCE DAILY, TAKEN BY MOUTH
     Route: 048
     Dates: start: 20140415, end: 20140522

REACTIONS (3)
  - Pruritus [None]
  - Urticaria [None]
  - Drug withdrawal syndrome [None]
